FAERS Safety Report 10785832 (Version 1)
Quarter: 2015Q1

REPORT INFORMATION
  Report Type: Spontaneous
  Country: US (occurrence: None)
  Receive Date: 20150210
  Receipt Date: 20150210
  Transmission Date: 20150721
  Serious: Yes (Hospitalization)
  Sender: FDA-Public Use
  Company Number: None

PATIENT
  Age: 94 Year
  Sex: Female
  Weight: 74 kg

DRUGS (9)
  1. SENNA (SENOKOT) [Concomitant]
  2. METOPROLOL (LOPRESSOR) [Concomitant]
  3. LOSARTAN (COZAAR) [Concomitant]
  4. TYLENOL [Concomitant]
     Active Substance: ACETAMINOPHEN
  5. ASPIRIN. [Concomitant]
     Active Substance: ASPIRIN
  6. TRIAMTERENE-HYDROCHLOROTHIAZIDE (MAXZIDE-25) [Concomitant]
  7. WARFARIN 2.5 MG [Suspect]
     Active Substance: WARFARIN
     Indication: ATRIAL FIBRILLATION
     Dosage: 1-2 TABLETS QD ORAL
     Route: 048
  8. CRANBERRY. [Concomitant]
     Active Substance: CRANBERRY
  9. ASCORBIC ACID\CHONDROITIN SULFATE (BOVINE)\GLUCOSAMINE SULFATE\MANGANESE [Concomitant]
     Active Substance: ASCORBIC ACID\CHONDROITIN SULFATE (BOVINE)\GLUCOSAMINE SULFATE\MANGANESE

REACTIONS (2)
  - Blood pressure increased [None]
  - Epistaxis [None]

NARRATIVE: CASE EVENT DATE: 20140313
